FAERS Safety Report 24955450 (Version 1)
Quarter: 2025Q1

REPORT INFORMATION
  Report Type: Spontaneous
  Country: US (occurrence: US)
  Receive Date: 20250211
  Receipt Date: 20250211
  Transmission Date: 20250408
  Serious: Yes (Other)
  Sender: VERICEL
  Company Number: US-VERICEL-US-VCEL-24-000034

PATIENT
  Age: 42 Year
  Sex: Female

DRUGS (3)
  1. MACI [Suspect]
     Active Substance: AUTOLOGOUS CULTURED CHONDROCYTES\SUS SCROFA COLLAGEN
     Indication: Chondropathy
     Route: 050
     Dates: start: 20231106, end: 20231106
  2. UNSPECIFIED INGREDIENT [Concomitant]
     Active Substance: UNSPECIFIED INGREDIENT
     Indication: Product used for unknown indication
     Route: 065
  3. TYLENOL [Concomitant]
     Active Substance: ACETAMINOPHEN
     Indication: Product used for unknown indication
     Route: 065

REACTIONS (2)
  - Graft delamination [Unknown]
  - Arthralgia [Unknown]

NARRATIVE: CASE EVENT DATE: 20240119
